FAERS Safety Report 6104545-8 (Version None)
Quarter: 2009Q1

REPORT INFORMATION
  Report Type: 
  Country: None (occurrence: None)
  Receive Date: 20090305
  Receipt Date: 20090225
  Transmission Date: 20090719
  Serious: Yes (Hospitalization)
  Sender: FDA-Public Use
  Company Number: US-ABBOTT-09P-163-0559509-00

PATIENT
  Sex: Female
  Weight: 52.8 kg

DRUGS (15)
  1. RITONAVIR SOFT GELATIN CAPSULES [Suspect]
     Indication: DRUG USE FOR UNKNOWN INDICATION
     Route: 048
     Dates: start: 20080630, end: 20081106
  2. MARAVIROC [Suspect]
     Indication: DRUG USE FOR UNKNOWN INDICATION
     Route: 048
     Dates: start: 20080630, end: 20081106
  3. RALTEGRAVIR [Suspect]
     Indication: DRUG USE FOR UNKNOWN INDICATION
     Route: 048
     Dates: start: 20080630, end: 20081106
  4. DARUNAVIR [Suspect]
     Indication: DRUG USE FOR UNKNOWN INDICATION
     Route: 048
     Dates: start: 20080630, end: 20081106
  5. VALGANCICLOVIR HCL [Concomitant]
     Indication: DRUG USE FOR UNKNOWN INDICATION
  6. SEPTRA DS [Concomitant]
     Indication: DRUG USE FOR UNKNOWN INDICATION
  7. MULTI-VITAMINS [Concomitant]
     Indication: DRUG USE FOR UNKNOWN INDICATION
  8. ZITHROMAX [Concomitant]
     Indication: DRUG USE FOR UNKNOWN INDICATION
  9. PEPCID [Concomitant]
     Indication: DRUG USE FOR UNKNOWN INDICATION
  10. PULMICORT-100 [Concomitant]
     Indication: DRUG USE FOR UNKNOWN INDICATION
  11. ALBUTEROL [Concomitant]
     Indication: DRUG USE FOR UNKNOWN INDICATION
  12. GUAIFENESIN W/DEXTROMETHORPHAN [Concomitant]
     Indication: DRUG USE FOR UNKNOWN INDICATION
  13. ZYRTEC [Concomitant]
     Indication: RHINITIS ALLERGIC
  14. ZYRTEC [Concomitant]
     Indication: NASOPHARYNGITIS
  15. TRISPEC [Concomitant]
     Indication: DRUG USE FOR UNKNOWN INDICATION

REACTIONS (8)
  - DIZZINESS [None]
  - HEADACHE [None]
  - MYALGIA [None]
  - NASOPHARYNGITIS [None]
  - NAUSEA [None]
  - PYREXIA [None]
  - RHINITIS ALLERGIC [None]
  - THROMBOCYTOPENIA [None]
